FAERS Safety Report 14902739 (Version 1)
Quarter: 2018Q2

REPORT INFORMATION
  Report Type: Spontaneous
  Country: US (occurrence: US)
  Receive Date: 20180516
  Receipt Date: 20180516
  Transmission Date: 20180711
  Serious: No
  Sender: FDA-Public Use
  Company Number: US-SA-2017SA092314

PATIENT
  Age: 66 Year
  Sex: Male
  Weight: 88.45 kg

DRUGS (3)
  1. LANTUS SOLOSTAR [Suspect]
     Active Substance: INSULIN GLARGINE
     Indication: TYPE 1 DIABETES MELLITUS
     Dosage: DOSE:38 UNIT(S)
     Route: 051
     Dates: start: 2012
  2. LANTUS SOLOSTAR [Suspect]
     Active Substance: INSULIN GLARGINE
     Indication: TYPE 1 DIABETES MELLITUS
     Dosage: 26 AM AND 14 HS
     Route: 051
     Dates: start: 20140601
  3. SOLOSTAR [Concomitant]
     Active Substance: DEVICE
     Dates: start: 2012

REACTIONS (2)
  - Off label use [Unknown]
  - Glycosylated haemoglobin increased [Unknown]
